FAERS Safety Report 17314184 (Version 1)
Quarter: 2020Q1

REPORT INFORMATION
  Report Type: Spontaneous
  Country: US (occurrence: US)
  Receive Date: 20200107
  Receipt Date: 20200107
  Transmission Date: 20200409
  Serious: Yes (Hospitalization)
  Sender: FDA-Public Use
  Company Number: None

PATIENT
  Age: 79 Year
  Sex: Female
  Weight: 53.98 kg

DRUGS (9)
  1. POTASSIUM HCL [Concomitant]
  2. ELIQUIS [Concomitant]
     Active Substance: APIXABAN
  3. FASLODEX [Concomitant]
     Active Substance: FULVESTRANT
  4. METOPROLOL. [Concomitant]
     Active Substance: METOPROLOL
  5. FUROSEMIDE. [Concomitant]
     Active Substance: FUROSEMIDE
  6. AMIODARONE [Concomitant]
     Active Substance: AMIODARONE
  7. ZOMETA [Concomitant]
     Active Substance: ZOLEDRONIC ACID
  8. VERZENIO [Suspect]
     Active Substance: ABEMACICLIB
     Indication: BREAST CANCER STAGE IV
     Dosage: ?          QUANTITY:1 DF DOSAGE FORM;?
     Dates: start: 20190927, end: 20191224
  9. PROTONIX [Concomitant]
     Active Substance: PANTOPRAZOLE SODIUM

REACTIONS (3)
  - Pulmonary congestion [None]
  - Peripheral swelling [None]
  - Rash [None]

NARRATIVE: CASE EVENT DATE: 20191224
